FAERS Safety Report 14001980 (Version 3)
Quarter: 2020Q1

REPORT INFORMATION
  Report Type: Spontaneous
  Country: US (occurrence: US)
  Receive Date: 20170922
  Receipt Date: 20200221
  Transmission Date: 20200409
  Serious: Yes (Hospitalization)
  Sender: FDA-Public Use
  Company Number: US-JNJFOC-20170912244

PATIENT
  Age: 75 Year
  Sex: Female

DRUGS (4)
  1. XARELTO [Suspect]
     Active Substance: RIVAROXABAN
     Indication: CEREBROVASCULAR ACCIDENT PROPHYLAXIS
     Route: 048
     Dates: start: 20121119, end: 201407
  2. XARELTO [Suspect]
     Active Substance: RIVAROXABAN
     Indication: THROMBOSIS PROPHYLAXIS
     Route: 048
     Dates: start: 2014
  3. XARELTO [Suspect]
     Active Substance: RIVAROXABAN
     Route: 048
     Dates: end: 20160408
  4. XARELTO [Suspect]
     Active Substance: RIVAROXABAN
     Indication: ATRIAL FIBRILLATION
     Route: 048
     Dates: start: 201407

REACTIONS (11)
  - Ecchymosis [Unknown]
  - Eyelid haematoma [Unknown]
  - Wound haemorrhage [Unknown]
  - Product prescribing error [Recovered/Resolved]
  - Fall [Unknown]
  - Internal haemorrhage [Unknown]
  - Subdural haematoma [Unknown]
  - Haematoma [Unknown]
  - Off label use [Recovered/Resolved]
  - Brain contusion [Unknown]
  - Contusion [Unknown]

NARRATIVE: CASE EVENT DATE: 2014
